FAERS Safety Report 21765412 (Version 4)
Quarter: 2023Q1

REPORT INFORMATION
  Report Type: Report from Study
  Country: CO (occurrence: CO)
  Receive Date: 20221222
  Receipt Date: 20230217
  Transmission Date: 20230417
  Serious: Yes (Death, Hospitalization)
  Sender: FDA-Public Use
  Company Number: CO-002147023-NVSC2022CO293677

PATIENT
  Age: 53 Year
  Sex: Female

DRUGS (5)
  1. ELTROMBOPAG OLAMINE [Suspect]
     Active Substance: ELTROMBOPAG OLAMINE
     Indication: Immune thrombocytopenia
     Dosage: 50 MG, QD (2 OF 25 MG)
     Route: 048
     Dates: start: 20221214
  2. ELTROMBOPAG OLAMINE [Suspect]
     Active Substance: ELTROMBOPAG OLAMINE
     Dosage: UNK
     Route: 048
     Dates: start: 20221215
  3. ELTROMBOPAG OLAMINE [Suspect]
     Active Substance: ELTROMBOPAG OLAMINE
     Dosage: 50 MG, QD
     Route: 048
  4. IMMUNOGLOBULIN [Concomitant]
     Indication: Product used for unknown indication
     Dosage: UNK
     Route: 065
  5. PREDNISONE [Concomitant]
     Active Substance: PREDNISONE
     Indication: Product used for unknown indication
     Dosage: UNK
     Route: 065

REACTIONS (7)
  - Death [Fatal]
  - Systemic lupus erythematosus [Recovering/Resolving]
  - Cerebral haemorrhage [Recovering/Resolving]
  - Product administration error [Unknown]
  - Inappropriate schedule of product administration [Unknown]
  - Disease recurrence [Recovering/Resolving]
  - Sedation [Unknown]

NARRATIVE: CASE EVENT DATE: 20230212
